FAERS Safety Report 11913335 (Version 1)
Quarter: 2016Q1

REPORT INFORMATION
  Report Type: Other
  Country: GB (occurrence: GB)
  Receive Date: 20160113
  Receipt Date: 20160113
  Transmission Date: 20160526
  Serious: Yes (Hospitalization)
  Sender: FDA-Public Use
  Company Number: GB-WARNER CHILCOTT, LLC-1046452

PATIENT
  Age: 86 Year
  Sex: Female

DRUGS (4)
  1. XARELTO [Suspect]
     Active Substance: RIVAROXABAN
     Route: 048
     Dates: start: 20151210
  2. WARFARIN [Concomitant]
     Active Substance: WARFARIN
     Dates: end: 20151209
  3. BUDENOFALK [Suspect]
     Active Substance: BUDESONIDE
     Route: 048
     Dates: start: 20151210
  4. ASACOL [Suspect]
     Active Substance: MESALAMINE
     Indication: COLITIS ULCERATIVE
     Route: 048
     Dates: start: 20151210, end: 20151229

REACTIONS (3)
  - Neutropenic sepsis [Recovering/Resolving]
  - Dyspnoea [Recovering/Resolving]
  - Pyrexia [Recovering/Resolving]
